FAERS Safety Report 19005356 (Version 1)
Quarter: 2021Q1

REPORT INFORMATION
  Report Type: Report from Study
  Country: None (occurrence: NL)
  Receive Date: 20210312
  Receipt Date: 20210312
  Transmission Date: 20210420
  Serious: Yes (Death)
  Sender: FDA-Public Use
  Company Number: NL-ABBVIE-21K-114-3796771-00

PATIENT
  Sex: Female

DRUGS (5)
  1. DUODOPA [Suspect]
     Active Substance: CARBIDOPA\LEVODOPA
     Dosage: MD:7.0 ML; CD:5.4ML/H ED:3.2 ML
     Route: 050
  2. DUODOPA [Suspect]
     Active Substance: CARBIDOPA\LEVODOPA
     Indication: PARKINSON^S DISEASE
     Dosage: MD:7.0 ML; CD:5.2ML/H ED:3.2 ML; END: 3.0; CND:4.2ML/H
     Route: 050
     Dates: start: 20191021
  3. DUODOPA [Suspect]
     Active Substance: CARBIDOPA\LEVODOPA
     Dosage: MD:7.0 ML; CD:5.6ML/H ED:3.2 ML
     Route: 050
  4. DUODOPA [Suspect]
     Active Substance: CARBIDOPA\LEVODOPA
     Dosage: MD: 7.0ML; CD: 5.4ML/H ED: 3.2ML; ND: 0.0ML, CND: 4.2ML/H, END: 3.0ML;
     Route: 050
  5. DUODOPA [Suspect]
     Active Substance: CARBIDOPA\LEVODOPA
     Dosage: MD:7.0 ML; CD:5.2ML/H ED:3.2 ML, ND: 0.0ML, CND:4.2ML/H, END: 3.0
     Route: 050

REACTIONS (12)
  - Wrong technique in device usage process [Unknown]
  - Asthenia [Not Recovered/Not Resolved]
  - Underdose [Not Recovered/Not Resolved]
  - Delusion [Not Recovered/Not Resolved]
  - Hallucination, auditory [Not Recovered/Not Resolved]
  - Feeling abnormal [Not Recovered/Not Resolved]
  - On and off phenomenon [Not Recovered/Not Resolved]
  - Device difficult to use [Unknown]
  - Weight decreased [Not Recovered/Not Resolved]
  - Death [Fatal]
  - Abdominal abscess [Not Recovered/Not Resolved]
  - Hallucination [Not Recovered/Not Resolved]

NARRATIVE: CASE EVENT DATE: 20210309
